FAERS Safety Report 18456514 (Version 1)
Quarter: 2020Q4

REPORT INFORMATION
  Report Type: Spontaneous
  Country: IL (occurrence: IL)
  Receive Date: 20201103
  Receipt Date: 20201103
  Transmission Date: 20210114
  Serious: Yes (Other)
  Sender: FDA-Public Use
  Company Number: IL-BRISTOL-MYERS SQUIBB COMPANY-BMS-2020-080375

PATIENT
  Age: 73 Year
  Sex: Female
  Weight: 80 kg

DRUGS (6)
  1. TRITACE [Concomitant]
     Active Substance: RAMIPRIL
     Indication: PRODUCT USED FOR UNKNOWN INDICATION
     Dosage: 2.5 MILLIGRAM, QD
     Route: 065
     Dates: start: 201912
  2. ELIQUIS [Suspect]
     Active Substance: APIXABAN
     Dosage: 2.5 MILLIGRAM, BID
     Route: 065
  3. ELIQUIS [Suspect]
     Active Substance: APIXABAN
     Indication: CEREBROVASCULAR ACCIDENT PROPHYLAXIS
     Dosage: 5 MILLIGRAM, BID
     Route: 065
     Dates: start: 201912
  4. CARDILOC [Concomitant]
     Active Substance: BISOPROLOL FUMARATE
     Indication: PRODUCT USED FOR UNKNOWN INDICATION
     Dosage: 2.5 MILLIGRAM, BID
     Dates: start: 20191225
  5. SOMATULINE [LANREOTIDE] [Concomitant]
     Active Substance: LANREOTIDE
     Indication: COLON NEOPLASM
     Dosage: ONCE IN 28 DAYS
     Route: 065
  6. ELIQUIS [Suspect]
     Active Substance: APIXABAN
     Dosage: INCREASE THE DOSE TO 2.5 MG TWICE A DAY AND THE NEXT DAY 2.5 MG ONCE A DAY
     Route: 065

REACTIONS (7)
  - Colon cancer [Unknown]
  - Vaginal haemorrhage [Recovered/Resolved]
  - Haemorrhage [Unknown]
  - Rash macular [Unknown]
  - Intentional product use issue [Unknown]
  - Escherichia test positive [Unknown]
  - Off label use [Unknown]

NARRATIVE: CASE EVENT DATE: 2020
